FAERS Safety Report 7361199-0 (Version None)
Quarter: 2011Q1

REPORT INFORMATION
  Report Type: 
  Country: None (occurrence: None)
  Receive Date: 20110318
  Receipt Date: 20110304
  Transmission Date: 20110831
  Serious: Yes (Other)
  Sender: FDA-Public Use
  Company Number: PHHY2011JP18370

PATIENT
  Age: 66 Year
  Sex: Female

DRUGS (3)
  1. IMATINIB MESYLATE [Suspect]
     Indication: CHRONIC MYELOID LEUKAEMIA
     Dosage: 400 MG PER DAY
     Dates: start: 20020201
  2. IMATINIB MESYLATE [Suspect]
     Dosage: 200 MG PER DAY
  3. IMATINIB MESYLATE [Suspect]
     Dosage: 300 MG, PER DAY

REACTIONS (4)
  - DRUG INEFFECTIVE [None]
  - DRUG RESISTANCE [None]
  - GENE MUTATION IDENTIFICATION TEST POSITIVE [None]
  - OEDEMA [None]
